FAERS Safety Report 6906114-6 (Version None)
Quarter: 2010Q3

REPORT INFORMATION
  Report Type: 
  Country: None (occurrence: None)
  Receive Date: 20100804
  Receipt Date: 20100727
  Transmission Date: 20110219
  Serious: Yes (Disabling)
  Sender: FDA-Public Use
  Company Number: AU-WYE-G06467110

PATIENT
  Sex: Female

DRUGS (3)
  1. EFFEXOR XR [Suspect]
     Dosage: 300MG DAILY
  2. VALPROATE SODIUM [Concomitant]
  3. OLANZAPINE [Concomitant]

REACTIONS (2)
  - BLINDNESS TRANSIENT [None]
  - MIGRAINE [None]
